FAERS Safety Report 11492056 (Version 3)
Quarter: 2015Q4

REPORT INFORMATION
  Report Type: Report from Study
  Country: US (occurrence: US)
  Receive Date: 20150910
  Receipt Date: 20151110
  Transmission Date: 20160304
  Serious: Yes (Hospitalization)
  Sender: FDA-Public Use
  Company Number: US-ACTELION-A-NJ2014-110050

PATIENT
  Age: 75 Year
  Sex: Female

DRUGS (9)
  1. IMODIUM [Concomitant]
     Active Substance: LOPERAMIDE HYDROCHLORIDE
  2. ADCIRCA [Concomitant]
     Active Substance: TADALAFIL
  3. VELETRI [Suspect]
     Active Substance: EPOPROSTENOL
     Dosage: 8 NG/KG, PER MIN
     Route: 041
  4. OXYGEN. [Concomitant]
     Active Substance: OXYGEN
     Dosage: 8 L/MIN, UNK
  5. OXYGEN. [Concomitant]
     Active Substance: OXYGEN
     Dosage: 6 L/MIN, UNK
  6. COUMADIN [Concomitant]
     Active Substance: WARFARIN SODIUM
  7. VELETRI [Suspect]
     Active Substance: EPOPROSTENOL
     Indication: PULMONARY ARTERIAL HYPERTENSION
     Dosage: 10 NG/KG, PER MIN
     Route: 042
     Dates: start: 20141203
  8. LASIX [Concomitant]
     Active Substance: FUROSEMIDE
  9. VELETRI [Suspect]
     Active Substance: EPOPROSTENOL
     Dosage: 5 NG/KG, PER MIN
     Route: 041

REACTIONS (26)
  - Abdominal mass [Unknown]
  - Pain in jaw [Unknown]
  - Nausea [Unknown]
  - Weight increased [Unknown]
  - Anaemia [Unknown]
  - Catheter site haemorrhage [Unknown]
  - Abdominal pain [Unknown]
  - Oedema peripheral [Unknown]
  - Somnolence [Unknown]
  - Condition aggravated [Recovering/Resolving]
  - Oedema [Unknown]
  - Dyspnoea [Unknown]
  - Hyperhidrosis [Unknown]
  - Constipation [Unknown]
  - Headache [Unknown]
  - Nasal congestion [Unknown]
  - Renal disorder [Unknown]
  - Dyspnoea exertional [Unknown]
  - Dizziness [Unknown]
  - Middle ear effusion [Recovering/Resolving]
  - Fluid retention [Unknown]
  - Diarrhoea [Unknown]
  - Flushing [Unknown]
  - Myalgia [Unknown]
  - Bronchitis [Unknown]
  - Transfusion [Unknown]

NARRATIVE: CASE EVENT DATE: 20150121
